FAERS Safety Report 8611089-8 (Version None)
Quarter: 2012Q3

REPORT INFORMATION
  Report Type: 
  Country: None (occurrence: None)
  Receive Date: 20120423
  Receipt Date: 20100318
  Transmission Date: 20120928
  Serious: Yes (Other)
  Sender: FDA-Public Use
  Company Number: PHEH2010US02501

PATIENT
  Age: 75 Year
  Sex: Female
  Weight: 79.4 kg

DRUGS (3)
  1. REVLIMID [Suspect]
     Indication: MYELODYSPLASTIC SYNDROME
     Dosage: 5 MG, QOD, ORAL
     Route: 048
     Dates: start: 20100201
  2. EXJADE [Suspect]
     Indication: IRON OVERLOAD
     Dosage: 2000 MG, QD, ORAL ; 2000 MG, QD
     Route: 048
     Dates: start: 20080310, end: 20100208
  3. EXJADE [Suspect]
     Indication: IRON OVERLOAD
     Dosage: 2000 MG, QD, ORAL ; 2000 MG, QD
     Route: 048
     Dates: start: 20100215

REACTIONS (1)
  - THROMBOCYTOPENIA [None]
